FAERS Safety Report 5396916-2 (Version None)
Quarter: 2007Q3

REPORT INFORMATION
  Report Type: 
  Country: None (occurrence: None)
  Receive Date: 20070725
  Receipt Date: 20070716
  Transmission Date: 20080115
  Serious: Yes (Hospitalization, Other)
  Sender: FDA-Public Use
  Company Number: FR-GENENTECH-243348

PATIENT
  Sex: Female
  Weight: 59 kg

DRUGS (9)
  1. MABTHERA [Suspect]
     Indication: RHEUMATOID ARTHRITIS
     Route: 042
     Dates: start: 20061130, end: 20061214
  2. ENBREL [Concomitant]
     Indication: RHEUMATOID ARTHRITIS
     Dosage: UNK, UNKNOWN
     Route: 065
     Dates: end: 20061001
  3. HUMIRA [Concomitant]
     Indication: RHEUMATOID ARTHRITIS
     Dosage: UNK, UNKNOWN
     Route: 065
  4. ARAVA [Concomitant]
     Indication: RHEUMATOID ARTHRITIS
     Dosage: UNK, UNKNOWN
     Route: 065
  5. SALAZOPYRINE [Concomitant]
     Indication: RHEUMATOID ARTHRITIS
     Dosage: UNK, UNKNOWN
     Route: 065
  6. NOVATREX [Concomitant]
     Indication: RHEUMATOID ARTHRITIS
     Dosage: 7.5 MG, UNKNOWN
     Route: 048
     Dates: start: 20061120
  7. CORTICOSTEROID NOS [Concomitant]
     Indication: RHEUMATOID ARTHRITIS
     Dosage: UNK, UNKNOWN
     Route: 065
  8. CORTANCYL [Concomitant]
     Indication: RHEUMATOID ARTHRITIS
     Dosage: 7.5 MG, UNK
     Route: 048
     Dates: start: 19990101
  9. CACIT D3 [Concomitant]
     Indication: OSTEOPOROSIS
     Dosage: 1 G, UNK
     Route: 048
     Dates: start: 19990101

REACTIONS (1)
  - FIBROMA [None]
